FAERS Safety Report 8394565-5 (Version None)
Quarter: 2012Q2

REPORT INFORMATION
  Report Type: 
  Country: None (occurrence: None)
  Receive Date: 20120530
  Receipt Date: 20120529
  Transmission Date: 20120825
  Serious: Yes (Death)
  Sender: FDA-Public Use
  Company Number: PHHY2012PK045818

PATIENT
  Age: 62 Year
  Sex: Female
  Weight: 55 kg

DRUGS (4)
  1. APIVAL [Concomitant]
  2. TOPAMAX [Concomitant]
  3. EXELON [Suspect]
     Dosage: 4.6 MG/ 24 HRS
     Route: 062
     Dates: start: 20120430, end: 20120521
  4. CARNEEL [Concomitant]

REACTIONS (1)
  - DEATH [None]
